FAERS Safety Report 7429325-2 (Version None)
Quarter: 2011Q2

REPORT INFORMATION
  Report Type: 
  Country: None (occurrence: None)
  Receive Date: 20110421
  Receipt Date: 20110411
  Transmission Date: 20111010
  Serious: Yes (Other)
  Sender: FDA-Public Use
  Company Number: AT-SANOFI-AVENTIS-2011SA022170

PATIENT
  Age: 65 Year
  Sex: Female
  Weight: 62 kg

DRUGS (4)
  1. SINTROM [Concomitant]
  2. NEBIVOLOL HCL [Concomitant]
     Dosage: DOSE:0.5 UNIT(S)
  3. CAL-D-VITA [Suspect]
     Indication: OSTEOPOROSIS
     Dates: end: 20110101
  4. MULTAQ [Suspect]
     Route: 048
     Dates: start: 20110225, end: 20110314

REACTIONS (5)
  - RESTLESSNESS [None]
  - CONDITION AGGRAVATED [None]
  - CONSTIPATION [None]
  - ARRHYTHMIA [None]
  - HEART RATE INCREASED [None]
